FAERS Safety Report 7773611-3 (Version None)
Quarter: 2011Q3

REPORT INFORMATION
  Report Type: 
  Country: None (occurrence: None)
  Receive Date: 20110923
  Receipt Date: 20110915
  Transmission Date: 20111222
  Serious: Yes (Hospitalization, Other)
  Sender: FDA-Public Use
  Company Number: US-BIOGENIDEC-2010BI010650

PATIENT
  Sex: Female

DRUGS (2)
  1. AVONEX [Suspect]
     Indication: MULTIPLE SCLEROSIS
     Route: 030
     Dates: start: 20050617, end: 20090625
  2. AVONEX [Suspect]
     Route: 030
     Dates: start: 20100411

REACTIONS (7)
  - CEREBROVASCULAR ACCIDENT [None]
  - FACIAL NEURALGIA [None]
  - ROAD TRAFFIC ACCIDENT [None]
  - HYPOAESTHESIA [None]
  - CONVULSION [None]
  - JOINT INJURY [None]
  - MULTIPLE SCLEROSIS [None]
